FAERS Safety Report 4302503-7 (Version None)
Quarter: 2004Q1

REPORT INFORMATION
  Report Type: 
  Country: None (occurrence: None)
  Receive Date: 20040223
  Receipt Date: 20040223
  Transmission Date: 20041129
  Serious: Yes (Disabling)
  Sender: FDA-Public Use
  Company Number: None

PATIENT
  Age: 54 Year
  Sex: Male
  Weight: 89.8122 kg

DRUGS (3)
  1. POLYGAM [Suspect]
     Indication: CHRONIC INFLAMMATORY DEMYELINATING POLYRADICULONEUROPATHY
     Dosage: 4/10 GMS INTRAVENOUS
     Route: 042
     Dates: start: 20040218, end: 20040219
  2. LYGAM [Concomitant]
  3. GAMMAGARD [Concomitant]

REACTIONS (1)
  - VISUAL DISTURBANCE [None]
